FAERS Safety Report 6607944-0 (Version None)
Quarter: 2010Q1

REPORT INFORMATION
  Report Type: 
  Country: None (occurrence: None)
  Receive Date: 20100222
  Receipt Date: 20100210
  Transmission Date: 20100710
  Serious: Yes (Death, Hospitalization)
  Sender: FDA-Public Use
  Company Number: 2010AC000128

PATIENT
  Age: 85 Year
  Sex: Female

DRUGS (25)
  1. DIGOXIN [Suspect]
     Dosage: 0.125 MG;QD;PO
     Route: 048
     Dates: start: 20000101, end: 20080301
  2. COUMADIN [Concomitant]
  3. AMIODARONE HCL [Concomitant]
  4. DIOVAN [Concomitant]
  5. SYNTHROID [Concomitant]
  6. POTASSIUM [Concomitant]
  7. LORTAB [Concomitant]
  8. CELEBREX [Concomitant]
  9. FOSAMAX [Concomitant]
  10. NORVASC [Concomitant]
  11. LASIX [Concomitant]
  12. CENTRUM SILVER [Concomitant]
  13. COREG [Concomitant]
  14. ACETAMINOPHEN [Concomitant]
  15. CALCIUM [Concomitant]
  16. CORDARONE [Concomitant]
  17. NITROGLYCERIN [Concomitant]
  18. FUROSEMIDE [Concomitant]
  19. APRELSONE [Concomitant]
  20. HYDRALAZINE HCL [Concomitant]
  21. KLOR-CON [Concomitant]
  22. ULTRAM [Concomitant]
  23. DARVOCET-N 100 [Concomitant]
  24. CLONIDINE [Concomitant]
  25. LEVAQUIN [Concomitant]

REACTIONS (30)
  - ARRHYTHMIA [None]
  - ATRIAL CONDUCTION TIME PROLONGATION [None]
  - ATRIAL FIBRILLATION [None]
  - BACK PAIN [None]
  - BALANCE DISORDER [None]
  - BRADYCARDIA [None]
  - CORONARY ARTERY DISEASE [None]
  - DECREASED APPETITE [None]
  - DYSPNOEA [None]
  - EJECTION FRACTION DECREASED [None]
  - FALL [None]
  - FATIGUE [None]
  - HEART INJURY [None]
  - HEART RATE INCREASED [None]
  - HYPERHIDROSIS [None]
  - LEFT VENTRICULAR DYSFUNCTION [None]
  - MOBILITY DECREASED [None]
  - MULTIPLE INJURIES [None]
  - MYOCARDIAL INFARCTION [None]
  - NAUSEA [None]
  - NECK PAIN [None]
  - OEDEMA [None]
  - PAIN IN EXTREMITY [None]
  - PALPITATIONS [None]
  - PULMONARY HYPERTENSION [None]
  - RENAL FAILURE ACUTE [None]
  - SUPRAVENTRICULAR TACHYCARDIA [None]
  - UNEVALUABLE EVENT [None]
  - VOMITING [None]
  - WEIGHT DECREASED [None]
